FAERS Safety Report 4599399-5 (Version None)
Quarter: 2005Q1

REPORT INFORMATION
  Report Type: 
  Country: None (occurrence: None)
  Receive Date: 20050307
  Receipt Date: 20050223
  Transmission Date: 20050727
  Serious: Yes (Other)
  Sender: FDA-Public Use
  Company Number: NO-JNJFOC-20050205486

PATIENT
  Sex: Male

DRUGS (10)
  1. REMICADE [Suspect]
     Route: 042
     Dates: start: 20030528, end: 20050126
  2. ALBYL-E [Concomitant]
     Route: 049
  3. ALBYL-E [Concomitant]
     Route: 049
  4. NEXIUM [Concomitant]
     Route: 049
  5. FOLIC ACID [Concomitant]
     Indication: PROPHYLAXIS
     Route: 049
     Dates: start: 20041108
  6. ZOCOR [Concomitant]
     Route: 049
  7. NORVASC [Concomitant]
     Indication: HYPERTENSION
     Route: 049
  8. METHOTREXATE [Concomitant]
     Route: 049
     Dates: start: 20041108
  9. RELIFEX [Concomitant]
     Route: 049
  10. ALLOPUR [Concomitant]
     Indication: GOUT
     Route: 049

REACTIONS (6)
  - ANAPHYLACTIC REACTION [None]
  - BLOOD PRESSURE DECREASED [None]
  - MUSCLE SPASMS [None]
  - NAUSEA [None]
  - PALLOR [None]
  - VOMITING [None]
